FAERS Safety Report 23206078 (Version 2)
Quarter: 2025Q2

REPORT INFORMATION
  Report Type: Spontaneous
  Country: US (occurrence: US)
  Receive Date: 20231120
  Receipt Date: 20250408
  Transmission Date: 20250716
  Serious: No
  Sender: SANOFI AVENTIS
  Company Number: US-SA-SAC20231114000211

PATIENT
  Age: 72 Year
  Sex: Female
  Weight: 79.37 kg

DRUGS (2)
  1. DUPIXENT [Suspect]
     Active Substance: DUPILUMAB
     Indication: Neurodermatitis
     Dosage: 300 MG, QOW
     Route: 058
  2. DOCONEXENT\ICOSAPENT [Concomitant]
     Active Substance: DOCONEXENT\ICOSAPENT

REACTIONS (2)
  - Muscle spasms [Unknown]
  - Surgery [Unknown]

NARRATIVE: CASE EVENT DATE: 20250101
